FAERS Safety Report 15852203 (Version 1)
Quarter: 2019Q1

REPORT INFORMATION
  Report Type: Spontaneous
  Country: GB (occurrence: CZ)
  Receive Date: 20190122
  Receipt Date: 20190122
  Transmission Date: 20190417
  Serious: Yes (Hospitalization)
  Sender: FDA-Public Use
  Company Number: CZ-FRESENIUS KABI-FK201900670

PATIENT
  Age: 63 Year
  Sex: Female
  Weight: 70 kg

DRUGS (11)
  1. IRINOTECAN HYDROCHLORIDE INJECTION [Suspect]
     Active Substance: IRINOTECAN HYDROCHLORIDE
     Indication: PRODUCT USED FOR UNKNOWN INDICATION
     Route: 065
  2. GRANISETRON HYDROCHLORIDE INJECTION [Suspect]
     Active Substance: GRANISETRON HYDROCHLORIDE
     Indication: COLON CANCER
     Dosage: FIRST LINE: 17.12.2018, SECOND LINE 3.1.2019
     Route: 042
     Dates: start: 2018, end: 20190103
  3. KETOTIFEN [Concomitant]
     Active Substance: KETOTIFEN
     Indication: PRODUCT USED FOR UNKNOWN INDICATION
     Dosage: 1-1-1
     Route: 048
  4. FENTANYL. [Concomitant]
     Active Substance: FENTANYL
     Indication: PRODUCT USED FOR UNKNOWN INDICATION
     Dosage: 100UG/H EMP.
     Route: 065
  5. CALCIUM FOLINATE [Concomitant]
     Active Substance: LEUCOVORIN CALCIUM
     Indication: PRODUCT USED FOR UNKNOWN INDICATION
     Route: 065
  6. RANITIDINE HYDROCHLORIDE. [Concomitant]
     Active Substance: RANITIDINE HYDROCHLORIDE
     Indication: PRODUCT USED FOR UNKNOWN INDICATION
     Route: 042
     Dates: start: 20190103, end: 20190103
  7. THIETHYLPERAZINE MALEATE [Concomitant]
     Active Substance: THIETHYLPERAZINE MALEATE
     Indication: PRODUCT USED FOR UNKNOWN INDICATION
     Route: 048
  8. AFLIBERCEPT [Concomitant]
     Active Substance: AFLIBERCEPT
     Indication: PRODUCT USED FOR UNKNOWN INDICATION
     Route: 065
  9. FLUOROURACIL. [Concomitant]
     Active Substance: FLUOROURACIL
     Indication: PRODUCT USED FOR UNKNOWN INDICATION
     Dosage: BOLUS 690MG + 4010MG 2 DAILY INFUSOR
     Route: 065
  10. RANITIDINE HYDROCHLORIDE. [Concomitant]
     Active Substance: RANITIDINE HYDROCHLORIDE
     Route: 065
     Dates: start: 20181217, end: 20181217
  11. DEXAMETHASONE SODIUM PHOSPHATE. [Concomitant]
     Active Substance: DEXAMETHASONE SODIUM PHOSPHATE
     Indication: PRODUCT USED FOR UNKNOWN INDICATION
     Dosage: 16MG/100ML F1/1
     Route: 065

REACTIONS (5)
  - Tachycardia [Recovering/Resolving]
  - Diarrhoea [Unknown]
  - Nausea [Recovering/Resolving]
  - Hot flush [Recovering/Resolving]
  - Asthenia [Recovering/Resolving]

NARRATIVE: CASE EVENT DATE: 20190103
